FAERS Safety Report 9567078 (Version 1)
Quarter: 2013Q3

REPORT INFORMATION
  Report Type: Spontaneous
  Country: US (occurrence: US)
  Receive Date: 20130930
  Receipt Date: 20130930
  Transmission Date: 20140515
  Serious: No
  Sender: FDA-Public Use
  Company Number: US-AMGEN-USASP2012061444

PATIENT
  Age: 63 Year
  Sex: Female
  Weight: 94.79 kg

DRUGS (9)
  1. ENBREL [Suspect]
     Indication: PSORIATIC ARTHROPATHY
     Dosage: 50 MG, QWK
     Route: 058
  2. GLUCOPHAGE [Concomitant]
     Dosage: 1000 MG, UNK
     Route: 048
  3. BYSTOLIC [Concomitant]
     Dosage: 10 MG, UNK
     Route: 048
  4. PROBENECID [Concomitant]
     Dosage: 500 MG, UNK
     Route: 048
  5. NEXIUM                             /01479302/ [Concomitant]
     Dosage: 20 MG, UNK
     Route: 048
  6. HYDROCHLOROTHIAZIDE W/TRIAMTERENE [Concomitant]
     Dosage: 25-50 MG
     Route: 048
  7. CELEBREX [Concomitant]
     Dosage: 100 MG, UNK
     Route: 048
  8. TUSSIN                             /00048001/ [Concomitant]
     Dosage: 100/5ML
     Route: 048
  9. DOXYCYCLINE [Concomitant]
     Dosage: 150 MG, UNK
     Route: 048

REACTIONS (1)
  - Bronchitis [Unknown]
